FAERS Safety Report 7277160-0 (Version None)
Quarter: 2011Q1

REPORT INFORMATION
  Report Type: 
  Country: None (occurrence: None)
  Receive Date: 20110202
  Receipt Date: 20110202
  Transmission Date: 20110831
  Serious: No
  Sender: FDA-Public Use
  Company Number: None

PATIENT
  Age: 59 Year
  Sex: Male
  Weight: 132 kg

DRUGS (2)
  1. HEPARIN [Suspect]
     Indication: SURGERY
     Dosage: 5000 UNITS OTHER IV
     Route: 042
     Dates: start: 20100504, end: 20100518
  2. HEPARIN [Suspect]
     Indication: ATRIAL FIBRILLATION
     Dosage: 5000 UNITS OTHER IV
     Route: 042
     Dates: start: 20100504, end: 20100518

REACTIONS (1)
  - THROMBOCYTOPENIA [None]
